FAERS Safety Report 19065344 (Version 1)
Quarter: 2021Q1

REPORT INFORMATION
  Report Type: Spontaneous
  Country: US (occurrence: US)
  Receive Date: 20210327
  Receipt Date: 20210327
  Transmission Date: 20210420
  Serious: Yes (Hospitalization, Other)
  Sender: FDA-Public Use
  Company Number: US-DRREDDYS-USA/USA/21/0133312

PATIENT
  Age: 3 Year
  Sex: Female

DRUGS (3)
  1. CALCIUM DISODIUM EDETATE [Concomitant]
     Indication: CHELATION THERAPY
  2. CIPROFLOXACIN. [Suspect]
     Active Substance: CIPROFLOXACIN
     Indication: ESCHERICHIA INFECTION
  3. BRITISH ANTI LEWISITE [Concomitant]
     Indication: CHELATION THERAPY

REACTIONS (2)
  - Inappropriate antidiuretic hormone secretion [Recovered/Resolved]
  - Encephalopathy [Recovered/Resolved]
